FAERS Safety Report 6013596-3 (Version None)
Quarter: 2008Q4

REPORT INFORMATION
  Report Type: 
  Country: None (occurrence: None)
  Receive Date: 20081218
  Receipt Date: 20081218
  Transmission Date: 20090506
  Serious: Yes (Other)
  Sender: FDA-Public Use
  Company Number: None

PATIENT
  Age: 70 Year
  Sex: Female

DRUGS (1)
  1. ALENDRONATE SODIUM [Suspect]
     Indication: OSTEOPENIA
     Dosage: TAKE 1 TABLET DAILY AS DIRECTED
     Route: 048

REACTIONS (2)
  - FOREIGN BODY TRAUMA [None]
  - PRODUCT QUALITY ISSUE [None]
